FAERS Safety Report 7074378-7 (Version None)
Quarter: 2010Q4

REPORT INFORMATION
  Report Type: 
  Country: None (occurrence: None)
  Receive Date: 20101029
  Receipt Date: 20101025
  Transmission Date: 20110411
  Serious: Yes (Death, Hospitalization)
  Sender: FDA-Public Use
  Company Number: ES-BRISTOL-MYERS SQUIBB COMPANY-15117302

PATIENT
  Age: 67 Year
  Sex: Male
  Weight: 107 kg

DRUGS (3)
  1. CETUXIMAB [Suspect]
     Indication: NON-SMALL CELL LUNG CANCER
     Dosage: 500MG/M2 1 IN 2W-17MAY10,CETUXIMAB 5MG/ML; RECENT INFUSION ON 30APR10(20TH ADMINISTRATION IN TOTAL)
     Route: 042
     Dates: start: 20091116, end: 20100430
  2. CARBOPLATIN [Suspect]
     Indication: NON-SMALL CELL LUNG CANCER
     Dosage: ON DAY 1 OF 21 DAY CYCLE
     Route: 042
  3. PACLITAXEL [Suspect]
     Indication: NON-SMALL CELL LUNG CANCER
     Dosage: ON DAY 1 OF 21 DAY CYCLE
     Route: 042

REACTIONS (1)
  - INTERSTITIAL LUNG DISEASE [None]
